FAERS Safety Report 8414400-6 (Version None)
Quarter: 2012Q2

REPORT INFORMATION
  Report Type: 
  Country: None (occurrence: None)
  Receive Date: 20120605
  Receipt Date: 20120524
  Transmission Date: 20120825
  Serious: Yes (Death)
  Sender: FDA-Public Use
  Company Number: JP-AMGEN-JPNSP2012034147

PATIENT
  Age: 74 Year
  Sex: Male

DRUGS (5)
  1. CASODEX [Concomitant]
  2. TAMSULOSIN HCL [Concomitant]
  3. LEUPROLIDE ACETATE [Concomitant]
  4. ROMIPLATE [Suspect]
     Indication: IDIOPATHIC THROMBOCYTOPENIC PURPURA
     Dosage: UNK
     Dates: start: 20110915
  5. ARICEPT [Concomitant]

REACTIONS (1)
  - PROSTATE CANCER [None]
